FAERS Safety Report 5644840-X (Version None)
Quarter: 2008Q1

REPORT INFORMATION
  Report Type: 
  Country: None (occurrence: None)
  Receive Date: 20080229
  Receipt Date: 20070907
  Transmission Date: 20080703
  Serious: No
  Sender: FDA-Public Use
  Company Number: A0679693A

PATIENT
  Sex: Female

DRUGS (3)
  1. VALTREX [Suspect]
  2. IBUPROFEN [Concomitant]
  3. TYLENOL (CAPLET) [Concomitant]

REACTIONS (2)
  - NAUSEA [None]
  - PAIN [None]
